FAERS Safety Report 16668029 (Version 1)
Quarter: 2019Q3

REPORT INFORMATION
  Report Type: Spontaneous
  Country: US (occurrence: US)
  Receive Date: 20190619
  Receipt Date: 20190619
  Transmission Date: 20191004
  Serious: Yes (Hospitalization)
  Sender: FDA-Public Use
  Company Number: None

PATIENT
  Age: 73 Year
  Sex: Female
  Weight: 82 kg

DRUGS (16)
  1. ASPIRIN. [Concomitant]
     Active Substance: ASPIRIN
  2. APIXABAN; BLINDED [Suspect]
     Active Substance: APIXABAN
     Indication: DEEP VEIN THROMBOSIS
     Route: 048
     Dates: start: 20181022
  3. PROCHLORPERAZINE MALEATE. [Concomitant]
     Active Substance: PROCHLORPERAZINE MALEATE
  4. BIOTIN [Concomitant]
     Active Substance: BIOTIN
  5. ACETYLCARNITINE [Concomitant]
     Active Substance: ACETYLCARNITINE
  6. BREO ELLIPTA [Concomitant]
     Active Substance: FLUTICASONE FUROATE\VILANTEROL TRIFENATATE
  7. PROAIR HFA [Concomitant]
     Active Substance: ALBUTEROL SULFATE
  8. ZOLPIDEM TARTRATE. [Concomitant]
     Active Substance: ZOLPIDEM TARTRATE
  9. BUPROPION XL [Concomitant]
     Active Substance: BUPROPION
  10. INCRUSE ELLIPTA [Concomitant]
     Active Substance: UMECLIDINIUM BROMIDE
  11. TRELEGY ELLIPTA [Concomitant]
     Active Substance: FLUTICASONE FUROATE\UMECLIDINIUM BROMIDE\VILANTEROL TRIFENATATE
  12. TUMERIC/GINGER/BLACK PEPPER [Concomitant]
  13. POTASSIUM CHLORIDE. [Concomitant]
     Active Substance: POTASSIUM CHLORIDE
  14. LOSARTAN. [Concomitant]
     Active Substance: LOSARTAN
  15. OXYCODONE HCL/ACETAMINOPHEN [Concomitant]
  16. LOMOTIL [Concomitant]
     Active Substance: ATROPINE SULFATE\DIPHENOXYLATE HYDROCHLORIDE

REACTIONS (1)
  - Pathological fracture [None]

NARRATIVE: CASE EVENT DATE: 20190604
